FAERS Safety Report 16853686 (Version 1)
Quarter: 2019Q3

REPORT INFORMATION
  Report Type: Spontaneous
  Country: US (occurrence: US)
  Receive Date: 20190926
  Receipt Date: 20190926
  Transmission Date: 20191005
  Serious: Yes (Other)
  Sender: FDA-Public Use
  Company Number: PHHY2014US171253

PATIENT
  Age: 26 Year
  Sex: Male

DRUGS (4)
  1. PONATINIB [Concomitant]
     Active Substance: PONATINIB
     Indication: PRODUCT USED FOR UNKNOWN INDICATION
     Route: 065
  2. PREDNISONE. [Concomitant]
     Active Substance: PREDNISONE
     Indication: PRODUCT USED FOR UNKNOWN INDICATION
     Route: 065
  3. NILOTINIB [Suspect]
     Active Substance: NILOTINIB
     Indication: ACUTE LYMPHOCYTIC LEUKAEMIA
     Dosage: 300 MG, BID
     Route: 065
  4. VINCRISTINE [Concomitant]
     Active Substance: VINCRISTINE
     Indication: PRODUCT USED FOR UNKNOWN INDICATION
     Route: 065

REACTIONS (10)
  - Acute lymphocytic leukaemia recurrent [Unknown]
  - Headache [Recovering/Resolving]
  - Tinnitus [Recovering/Resolving]
  - Asthenia [Recovering/Resolving]
  - Central nervous system leukaemia [Unknown]
  - Product use in unapproved indication [Unknown]
  - Facial paralysis [Recovering/Resolving]
  - Gait disturbance [Recovering/Resolving]
  - Lymphocyte morphology abnormal [Recovering/Resolving]
  - Thrombocytopenia [Unknown]
